FAERS Safety Report 9476584 (Version 3)
Quarter: 2013Q4

REPORT INFORMATION
  Report Type: Spontaneous
  Country: GB (occurrence: GB)
  Receive Date: 20130826
  Receipt Date: 20131118
  Transmission Date: 20140711
  Serious: Yes (Hospitalization)
  Sender: FDA-Public Use
  Company Number: GB-SHIRE-ALL1-2013-05516

PATIENT
  Age: 12 Year
  Sex: Female

DRUGS (1)
  1. PENTASA [Suspect]
     Indication: COLITIS ULCERATIVE
     Dosage: UNK, UNKNOWN
     Route: 048

REACTIONS (2)
  - Pericardial effusion [Recovering/Resolving]
  - Pericarditis [Recovering/Resolving]
